FAERS Safety Report 8518800-5 (Version None)
Quarter: 2012Q3

REPORT INFORMATION
  Report Type: 
  Country: None (occurrence: None)
  Receive Date: 20120718
  Receipt Date: 20120710
  Transmission Date: 20120928
  Serious: Yes (Other)
  Sender: FDA-Public Use
  Company Number: PHHY2012JP051386

PATIENT

DRUGS (2)
  1. CELECOXIB [Suspect]
     Indication: MIXED CONNECTIVE TISSUE DISEASE
     Route: 048
  2. DICLOFENAC [Suspect]

REACTIONS (1)
  - MENINGITIS ASEPTIC [None]
